FAERS Safety Report 17771538 (Version 1)
Quarter: 2020Q2

REPORT INFORMATION
  Report Type: Spontaneous
  Country: BA (occurrence: BA)
  Receive Date: 20200512
  Receipt Date: 20200512
  Transmission Date: 20200714
  Serious: Yes (Hospitalization)
  Sender: FDA-Public Use
  Company Number: BA-JUBILANT CADISTA PHARMACEUTICALS-2020JUB00163

PATIENT
  Age: 18 Year
  Sex: Male
  Weight: 75.74 kg

DRUGS (1)
  1. CARBAMAZEPINE. [Suspect]
     Active Substance: CARBAMAZEPINE
     Indication: EPILEPSY
     Dosage: 400 MG, 2X/DAY
     Route: 065

REACTIONS (1)
  - Familial periodic paralysis [Recovered/Resolved]
